FAERS Safety Report 19351858 (Version 1)
Quarter: 2021Q2

REPORT INFORMATION
  Report Type: Spontaneous
  Country: FR (occurrence: FR)
  Receive Date: 20210601
  Receipt Date: 20210601
  Transmission Date: 20210717
  Serious: Yes (Hospitalization)
  Sender: FDA-Public Use
  Company Number: NVSC2021FR114943

PATIENT
  Age: 53 Year
  Sex: Male
  Weight: 124 kg

DRUGS (3)
  1. OFLOXACINE SANDOZ [Suspect]
     Active Substance: OFLOXACIN
     Indication: BILIARY ABSCESS
     Dosage: 400 MG, QD (200 MG 2X/J)
     Route: 048
     Dates: start: 20210331
  2. METRONIDAZOLE. [Suspect]
     Active Substance: METRONIDAZOLE
     Indication: BILIARY ABSCESS
     Dosage: 1500 MG, QD (500 MG 3X/J)
     Route: 065
     Dates: start: 20210331
  3. CEFTRIAXONE. [Suspect]
     Active Substance: CEFTRIAXONE
     Indication: BILIARY ABSCESS
     Dosage: 2 G, QD (2 G/J)
     Route: 042
     Dates: start: 20210331, end: 20210503

REACTIONS (1)
  - Cholestasis [Not Recovered/Not Resolved]

NARRATIVE: CASE EVENT DATE: 20210503
